FAERS Safety Report 18381437 (Version 1)
Quarter: 2020Q4

REPORT INFORMATION
  Report Type: Spontaneous
  Country: US (occurrence: US)
  Receive Date: 20201013
  Receipt Date: 20201013
  Transmission Date: 20210114
  Serious: Yes (Hospitalization)
  Sender: FDA-Public Use
  Company Number: None

PATIENT
  Age: 85 Year
  Sex: Female
  Weight: 85 kg

DRUGS (1)
  1. RIVAROXABAN [Suspect]
     Active Substance: RIVAROXABAN
     Indication: ATRIAL FIBRILLATION
     Route: 048

REACTIONS (5)
  - Paraesthesia [None]
  - Cerebral haemorrhage [None]
  - Hypoaesthesia [None]
  - Hypothalamic hamartoma [None]
  - Hemiparesis [None]

NARRATIVE: CASE EVENT DATE: 20201011
